FAERS Safety Report 18732876 (Version 2)
Quarter: 2021Q2

REPORT INFORMATION
  Report Type: Report from Study
  Country: CA (occurrence: CA)
  Receive Date: 20210113
  Receipt Date: 20210517
  Transmission Date: 20210717
  Serious: Yes (Other)
  Sender: FDA-Public Use
  Company Number: CA-JNJFOC-20201227437

PATIENT
  Age: 70 Year
  Sex: Female
  Weight: 68 kg

DRUGS (5)
  1. REMICADE [Suspect]
     Active Substance: INFLIXIMAB
     Indication: RHEUMATOID ARTHRITIS
     Dosage: ON 11?JAN?2021, THE PATIENT RECEIVED 2ND REMICADE INFUSION OF 207 MG
     Route: 042
     Dates: start: 20200930
  2. REMICADE [Suspect]
     Active Substance: INFLIXIMAB
     Route: 042
     Dates: start: 20200930
  3. REMICADE [Suspect]
     Active Substance: INFLIXIMAB
     Route: 042
  4. METHOTREXATE. [Concomitant]
     Active Substance: METHOTREXATE
     Indication: PRODUCT USED FOR UNKNOWN INDICATION
     Route: 065
  5. PLAQUENIL [HYDROXYCHLOROQUINE PHOSPHATE] [Concomitant]
     Active Substance: HYDROXYCHLOROQUINE DIPHOSPHATE
     Indication: PRODUCT USED FOR UNKNOWN INDICATION
     Route: 065

REACTIONS (6)
  - Off label use [Unknown]
  - Product use issue [Unknown]
  - Arthritis [Recovering/Resolving]
  - Product dose omission issue [Unknown]
  - Metastatic neoplasm [Unknown]
  - Colitis [Unknown]

NARRATIVE: CASE EVENT DATE: 2020
